FAERS Safety Report 7227044-9 (Version None)
Quarter: 2011Q1

REPORT INFORMATION
  Report Type: 
  Country: None (occurrence: None)
  Receive Date: 20110114
  Receipt Date: 20110112
  Transmission Date: 20110831
  Serious: Yes (Life-Threatening, Other)
  Sender: FDA-Public Use
  Company Number: FR-SANOFI-AVENTIS-2010SA069446

PATIENT
  Sex: Female

DRUGS (1)
  1. TAXOTERE [Suspect]
     Route: 065
     Dates: end: 20100901

REACTIONS (6)
  - ATRIAL FIBRILLATION [None]
  - ALOPECIA [None]
  - PULMONARY HYPERTENSION [None]
  - PERICARDITIS [None]
  - RENAL FAILURE [None]
  - SINUS DISORDER [None]
